FAERS Safety Report 20608471 (Version 3)
Quarter: 2023Q1

REPORT INFORMATION
  Report Type: Spontaneous
  Country: CA (occurrence: CA)
  Receive Date: 20220317
  Receipt Date: 20230222
  Transmission Date: 20230418
  Serious: Yes (Congenital Anomaly)
  Sender: FDA-Public Use
  Company Number: CA-VERTEX PHARMACEUTICALS-2022-004171

PATIENT
  Age: 28 Year
  Sex: Female
  Weight: 68 kg

DRUGS (1)
  1. TRIKAFTA [Suspect]
     Active Substance: ELEXACAFTOR\IVACAFTOR\TEZACAFTOR
     Indication: Cystic fibrosis
     Dosage: 2 ORANGE TABS IN AM AND 1 BLUE TAB IN PM
     Route: 048
     Dates: start: 20210724

REACTIONS (5)
  - Congenital large intestinal atresia [Recovered/Resolved]
  - Enteric duplication [Recovered/Resolved]
  - Gestational diabetes [Not Recovered/Not Resolved]
  - Exposure during pregnancy [Unknown]
  - Meconium cyst [Recovered/Resolved]

NARRATIVE: CASE EVENT DATE: 20220201
